FAERS Safety Report 20638969 (Version 1)
Quarter: 2022Q1

REPORT INFORMATION
  Report Type: Spontaneous
  Country: CN (occurrence: CN)
  Receive Date: 20220325
  Receipt Date: 20220325
  Transmission Date: 20220423
  Serious: Yes (Other)
  Sender: FDA-Public Use
  Company Number: CN-BAXTER-2022BAX006495

PATIENT
  Age: 29 Year
  Sex: Male
  Weight: 67 kg

DRUGS (6)
  1. CYCLOPHOSPHAMIDE [Suspect]
     Active Substance: CYCLOPHOSPHAMIDE
     Indication: T-cell lymphoma
     Dosage: CYCLOPHOSPHAMIDE 1.2G + 0.9% SODIUM CHLORIDE  100ML
     Route: 041
     Dates: start: 20220310, end: 20220310
  2. SODIUM CHLORIDE [Suspect]
     Active Substance: SODIUM CHLORIDE
     Indication: Medication dilution
     Dosage: CYCLOPHOSPHAMIDE 1.2G + 0.9% SODIUM CHLORIDE  100ML
     Route: 041
     Dates: start: 20220310, end: 20220310
  3. SODIUM CHLORIDE [Suspect]
     Active Substance: SODIUM CHLORIDE
     Dosage: VINCRISTINE SULFATE 2 MG + 0.9% SODIUM CHLORIDE 10ML
     Route: 042
     Dates: start: 20220310, end: 20220310
  4. DEXTROSE [Suspect]
     Active Substance: DEXTROSE
     Indication: Medication dilution
     Dosage: DOXORUBICIN HYDROCHLORIDE 80MG + 5% GLUCOSE 250ML
     Route: 041
     Dates: start: 20220310, end: 20220310
  5. DOXORUBICIN HYDROCHLORIDE [Suspect]
     Active Substance: DOXORUBICIN HYDROCHLORIDE
     Indication: T-cell lymphoma
     Dosage: DOXORUBICIN HYDROCHLORIDE 80MG + 5% GLUCOSE 250ML
     Route: 041
     Dates: start: 20220310, end: 20220310
  6. VINCRISTINE SULFATE [Suspect]
     Active Substance: VINCRISTINE SULFATE
     Indication: T-cell lymphoma
     Dosage: VINCRISTINE SULFATE 2 MG + 0.9% SODIUM CHLORIDE 10ML
     Route: 042
     Dates: start: 20220310, end: 20220310

REACTIONS (1)
  - Myelosuppression [Not Recovered/Not Resolved]

NARRATIVE: CASE EVENT DATE: 20220318
